FAERS Safety Report 10339503 (Version 2)
Quarter: 2014Q4

REPORT INFORMATION
  Report Type: Spontaneous
  Country: US (occurrence: US)
  Receive Date: 20140724
  Receipt Date: 20141031
  Transmission Date: 20150528
  Serious: Yes (Other)
  Sender: FDA-Public Use
  Company Number: US-BAYER-2014-110259

PATIENT
  Age: 32 Year
  Sex: Female
  Weight: 54.42 kg

DRUGS (1)
  1. MIRENA [Suspect]
     Active Substance: LEVONORGESTREL
     Indication: CONTRACEPTION
     Dosage: 20 MCG/24HR, CONT
     Route: 015
     Dates: start: 20050106

REACTIONS (8)
  - Pain [None]
  - Device dislocation [None]
  - Injury [None]
  - Device dislocation [None]
  - Device issue [None]
  - Device difficult to use [None]
  - Device misuse [None]
  - Endometriosis [None]

NARRATIVE: CASE EVENT DATE: 200510
